FAERS Safety Report 7045801-9 (Version None)
Quarter: 2010Q4

REPORT INFORMATION
  Report Type: 
  Country: None (occurrence: None)
  Receive Date: 20101014
  Receipt Date: 20101004
  Transmission Date: 20110411
  Serious: Yes (Other)
  Sender: FDA-Public Use
  Company Number: US-JNJFOC-20101001248

PATIENT
  Sex: Female
  Weight: 87.54 kg

DRUGS (7)
  1. REMICADE [Suspect]
     Indication: PSORIATIC ARTHROPATHY
     Route: 042
  2. REMICADE [Suspect]
     Route: 042
  3. MTX [Concomitant]
     Indication: PSORIATIC ARTHROPATHY
  4. BENADRYL [Concomitant]
     Indication: PREMEDICATION
  5. ANTI-NAUSEA MEDICATION [Concomitant]
     Indication: NAUSEA
  6. FOLIC ACID [Concomitant]
     Indication: NUTRITIONAL SUPPORT
  7. TYLENOL [Concomitant]
     Indication: PREMEDICATION

REACTIONS (4)
  - DRUG INEFFECTIVE [None]
  - FATIGUE [None]
  - TOOTH LOSS [None]
  - WEIGHT INCREASED [None]
